FAERS Safety Report 8103925-9 (Version None)
Quarter: 2012Q1

REPORT INFORMATION
  Report Type: 
  Country: None (occurrence: None)
  Receive Date: 20120201
  Receipt Date: 20120124
  Transmission Date: 20120608
  Serious: Yes (Hospitalization)
  Sender: FDA-Public Use
  Company Number: US-BAYER-2010-001091

PATIENT
  Age: 18 Year
  Sex: Female
  Weight: 61.224 kg

DRUGS (1)
  1. YASMIN [Suspect]
     Dosage: UNK
     Dates: start: 20080901, end: 20090301

REACTIONS (6)
  - QUALITY OF LIFE DECREASED [None]
  - PAIN [None]
  - ANXIETY [None]
  - FEAR [None]
  - GALLBLADDER INJURY [None]
  - ANHEDONIA [None]
